FAERS Safety Report 9889455 (Version 1)
Quarter: 2014Q1

REPORT INFORMATION
  Report Type: Report from Study
  Country: US (occurrence: US)
  Receive Date: 20140211
  Receipt Date: 20140211
  Transmission Date: 20141002
  Serious: Yes (Hospitalization)
  Sender: FDA-Public Use
  Company Number: US-ABBVIE-14P-163-1199065-00

PATIENT
  Age: 75 Year
  Sex: Male
  Weight: 95 kg

DRUGS (2)
  1. LUPRON DEPOT [Suspect]
     Indication: PROSTATE CANCER
     Route: 050
     Dates: start: 20130802, end: 20130802
  2. TAK-700 VS PLACEBO [Suspect]
     Indication: PROSTATE CANCER
     Route: 048
     Dates: start: 20130802, end: 20140127

REACTIONS (1)
  - Encephalopathy [Not Recovered/Not Resolved]
